FAERS Safety Report 15608979 (Version 2)
Quarter: 2019Q1

REPORT INFORMATION
  Report Type: Spontaneous
  Country: US (occurrence: US)
  Receive Date: 20181112
  Receipt Date: 20190329
  Transmission Date: 20190417
  Serious: Yes (Other)
  Sender: FDA-Public Use
  Company Number: US-SA-2018SA307725

PATIENT
  Age: 43 Year
  Sex: Female
  Weight: 77.11 kg

DRUGS (6)
  1. TAXOTERE [Suspect]
     Active Substance: DOCETAXEL
     Indication: BREAST CANCER FEMALE
     Dosage: 150 MG, Q3W
     Route: 042
     Dates: start: 20130322, end: 20130322
  2. DOXORUBICIN [Concomitant]
     Active Substance: DOXORUBICIN
  3. NEOSAR [Concomitant]
     Active Substance: CYCLOPHOSPHAMIDE
  4. TAXOTERE [Suspect]
     Active Substance: DOCETAXEL
     Dosage: 150 MG, Q3W
     Route: 042
     Dates: start: 20130524, end: 20130524
  5. VITAMINS NOS [Concomitant]
     Active Substance: VITAMINS
  6. ZOFRAN [Concomitant]
     Active Substance: ONDANSETRON HYDROCHLORIDE

REACTIONS (3)
  - Emotional distress [Unknown]
  - Psychological trauma [Unknown]
  - Alopecia [Recovering/Resolving]

NARRATIVE: CASE EVENT DATE: 201204
